FAERS Safety Report 15279411 (Version 2)
Quarter: 2018Q3

REPORT INFORMATION
  Report Type: Spontaneous
  Country: NL (occurrence: NL)
  Receive Date: 20180815
  Receipt Date: 20180830
  Transmission Date: 20181010
  Serious: Yes (Other)
  Sender: FDA-Public Use
  Company Number: NL-ASTRAZENECA-2018SF02042

PATIENT
  Age: 79 Year
  Sex: Male

DRUGS (4)
  1. BUDESONIDE/FORMOTEROL [Suspect]
     Active Substance: BUDESONIDE\FORMOTEROL
     Dosage: 200/6 UG/DOSE TWICE DAILY 1 INHALATION
     Route: 055
  2. CODEINE [Suspect]
     Active Substance: CODEINE
     Indication: COUGH
     Dosage: 10.0MG AS REQUIRED
     Route: 065
  3. PREDNISONE. [Suspect]
     Active Substance: PREDNISONE
     Indication: CHRONIC OBSTRUCTIVE PULMONARY DISEASE
     Route: 065
  4. FLUTICASONE PROPIONATE. [Suspect]
     Active Substance: FLUTICASONE PROPIONATE
     Indication: SINUSITIS
     Dosage: 50 UG/DOSE, TWICE DAILY 1 SPRAY
     Route: 045

REACTIONS (2)
  - Hypomania [Recovered/Resolved]
  - Drug hypersensitivity [Unknown]
